FAERS Safety Report 9656780 (Version 2)
Quarter: 2013Q4

REPORT INFORMATION
  Report Type: Report from Study
  Country: TR (occurrence: TR)
  Receive Date: 20131030
  Receipt Date: 20131203
  Transmission Date: 20140711
  Serious: Yes (Hospitalization)
  Sender: FDA-Public Use
  Company Number: TR-ABBVIE-13P-161-1163286-00

PATIENT
  Age: 57 Year
  Sex: Female
  Weight: 72 kg

DRUGS (3)
  1. HUMIRA [Suspect]
     Indication: RHEUMATOID ARTHRITIS
     Route: 058
     Dates: start: 20120810, end: 20130927
  2. HUMIRA [Suspect]
     Route: 058
     Dates: start: 20131122
  3. FLUDEX [Concomitant]
     Indication: HYPERTENSION
     Dosage: 1X1
     Route: 048

REACTIONS (3)
  - Ligament rupture [Recovered/Resolved]
  - Fall [Unknown]
  - Musculoskeletal pain [Recovered/Resolved]
